FAERS Safety Report 7256262-9 (Version None)
Quarter: 2011Q1

REPORT INFORMATION
  Report Type: 
  Country: None (occurrence: None)
  Receive Date: 20110129
  Receipt Date: 20100615
  Transmission Date: 20110831
  Serious: No
  Sender: FDA-Public Use
  Company Number: US-ABBOTT-10P-163-0646480-00

PATIENT
  Sex: Female
  Weight: 129.39 kg

DRUGS (6)
  1. ASACOL [Concomitant]
     Indication: CROHN'S DISEASE
  2. FUROSEMIDE [Concomitant]
     Indication: HYPERTENSION
  3. ENJUVIA [Concomitant]
     Indication: HORMONE REPLACEMENT THERAPY
  4. PROTONIX [Concomitant]
     Indication: CROHN'S DISEASE
  5. HUMIRA [Suspect]
     Indication: CROHN'S DISEASE
     Dates: start: 20100301
  6. CELEXA [Concomitant]
     Indication: ANXIETY

REACTIONS (3)
  - DEVICE MALFUNCTION [None]
  - INJECTION SITE PRURITUS [None]
  - INJECTION SITE PAIN [None]
